FAERS Safety Report 20845849 (Version 1)
Quarter: 2022Q2

REPORT INFORMATION
  Report Type: Spontaneous
  Country: US (occurrence: US)
  Receive Date: 20220518
  Receipt Date: 20220518
  Transmission Date: 20220721
  Serious: No
  Sender: FDA-Public Use
  Company Number: US-PFIZER INC-2021229968

PATIENT
  Age: 84 Year
  Sex: Female
  Weight: 157 kg

DRUGS (1)
  1. VYNDAMAX [Suspect]
     Active Substance: TAFAMIDIS
     Indication: Cardiac failure congestive
     Dosage: 61 MG, DAILY

REACTIONS (4)
  - Off label use [Unknown]
  - Malaise [Unknown]
  - Fluid retention [Unknown]
  - Weight fluctuation [Unknown]
